FAERS Safety Report 24245355 (Version 13)
Quarter: 2025Q1

REPORT INFORMATION
  Report Type: Spontaneous
  Country: FR (occurrence: FR)
  Receive Date: 20240824
  Receipt Date: 20250110
  Transmission Date: 20250409
  Serious: Yes (Hospitalization, Other)
  Sender: ROCHE
  Company Number: None

PATIENT
  Age: 67 Year
  Sex: Male
  Weight: 82 kg

DRUGS (62)
  1. RITUXIMAB [Suspect]
     Active Substance: RITUXIMAB
     Indication: Richter^s syndrome
     Route: 050
     Dates: start: 20240725, end: 20240725
  2. RITUXIMAB [Suspect]
     Active Substance: RITUXIMAB
     Indication: Diffuse large B-cell lymphoma stage I
     Route: 050
     Dates: start: 20240829
  3. RITUXIMAB [Suspect]
     Active Substance: RITUXIMAB
     Indication: Diffuse large B-cell lymphoma
     Route: 065
     Dates: start: 20240926
  4. RITUXIMAB [Suspect]
     Active Substance: RITUXIMAB
     Route: 050
     Dates: start: 20240725, end: 20240829
  5. EPCORITAMAB [Suspect]
     Active Substance: EPCORITAMAB
     Indication: Richter^s syndrome
     Route: 050
     Dates: start: 20240726, end: 20240726
  6. EPCORITAMAB [Suspect]
     Active Substance: EPCORITAMAB
     Indication: Diffuse large B-cell lymphoma stage I
     Route: 050
     Dates: start: 20240816, end: 20240816
  7. EPCORITAMAB [Suspect]
     Active Substance: EPCORITAMAB
     Indication: Diffuse large B-cell lymphoma
     Route: 050
     Dates: start: 20240809, end: 20240809
  8. EPCORITAMAB [Suspect]
     Active Substance: EPCORITAMAB
     Route: 050
     Dates: start: 20240823, end: 20240830
  9. EPCORITAMAB [Suspect]
     Active Substance: EPCORITAMAB
     Route: 050
     Dates: start: 20240913
  10. EPCORITAMAB [Suspect]
     Active Substance: EPCORITAMAB
     Route: 065
  11. DOXORUBICIN HYDROCHLORIDE [Suspect]
     Active Substance: DOXORUBICIN HYDROCHLORIDE
     Indication: Richter^s syndrome
     Route: 042
     Dates: start: 20240725, end: 20240725
  12. DOXORUBICIN HYDROCHLORIDE [Suspect]
     Active Substance: DOXORUBICIN HYDROCHLORIDE
     Indication: Diffuse large B-cell lymphoma stage I
     Route: 042
     Dates: start: 20240829
  13. DOXORUBICIN HYDROCHLORIDE [Suspect]
     Active Substance: DOXORUBICIN HYDROCHLORIDE
     Indication: Diffuse large B-cell lymphoma
     Route: 065
     Dates: start: 20240926
  14. DOXORUBICIN HYDROCHLORIDE [Suspect]
     Active Substance: DOXORUBICIN HYDROCHLORIDE
     Route: 042
     Dates: start: 20240725, end: 20240829
  15. VINCRISTINE SULFATE [Suspect]
     Active Substance: VINCRISTINE SULFATE
     Indication: Richter^s syndrome
     Route: 050
     Dates: start: 20240725, end: 20240725
  16. VINCRISTINE SULFATE [Suspect]
     Active Substance: VINCRISTINE SULFATE
     Indication: Diffuse large B-cell lymphoma stage I
     Route: 050
     Dates: start: 20240829
  17. VINCRISTINE SULFATE [Suspect]
     Active Substance: VINCRISTINE SULFATE
     Indication: Diffuse large B-cell lymphoma
     Route: 065
     Dates: start: 20240926
  18. VINCRISTINE SULFATE [Suspect]
     Active Substance: VINCRISTINE SULFATE
     Route: 050
     Dates: start: 20240725, end: 20240829
  19. CYCLOPHOSPHAMIDE [Suspect]
     Active Substance: CYCLOPHOSPHAMIDE
     Indication: Richter^s syndrome
     Route: 050
     Dates: start: 20240725, end: 20240725
  20. CYCLOPHOSPHAMIDE [Suspect]
     Active Substance: CYCLOPHOSPHAMIDE
     Indication: Diffuse large B-cell lymphoma stage I
     Route: 050
     Dates: start: 20240829
  21. CYCLOPHOSPHAMIDE [Suspect]
     Active Substance: CYCLOPHOSPHAMIDE
     Indication: Diffuse large B-cell lymphoma
     Route: 042
     Dates: start: 20240725, end: 20240829
  22. CYCLOPHOSPHAMIDE [Suspect]
     Active Substance: CYCLOPHOSPHAMIDE
     Route: 042
     Dates: start: 20240926
  23. PREDNISONE [Suspect]
     Active Substance: PREDNISONE
     Indication: Richter^s syndrome
     Dosage: 100 MG/DAY, C1D1-D5, AS A PART OF R-CHOP REGIMEN, 3-WEEK CYCLE (21 DAYS) (DAY 1), INTRAVENOUS OR ORA
     Route: 048
     Dates: start: 20240725, end: 20240729
  24. PREDNISONE [Suspect]
     Active Substance: PREDNISONE
     Indication: Diffuse large B-cell lymphoma stage I
     Dosage: 100 MG/DAY, C1D1-D5, AS A PART OF R-CHOP REGIMEN, 3-WEEK CYCLE (21 DAYS) (DAY 1), INTRAVENOUS OR ORA
     Route: 048
     Dates: start: 20240829, end: 20240902
  25. PREDNISONE [Suspect]
     Active Substance: PREDNISONE
     Indication: Diffuse large B-cell lymphoma
  26. EFFERALGAN [Concomitant]
     Active Substance: ACETAMINOPHEN
     Indication: Premedication
     Route: 050
     Dates: start: 20240726, end: 20240816
  27. EFFERALGAN [Concomitant]
     Active Substance: ACETAMINOPHEN
     Route: 050
     Dates: start: 20240816, end: 20240816
  28. EFFERALGAN [Concomitant]
     Active Substance: ACETAMINOPHEN
     Route: 050
     Dates: start: 20240809, end: 20240809
  29. POLARAMINE [Concomitant]
     Active Substance: DEXCHLORPHENIRAMINE MALEATE
     Route: 048
     Dates: start: 20240726, end: 20240816
  30. POLARAMINE [Concomitant]
     Active Substance: DEXCHLORPHENIRAMINE MALEATE
     Route: 048
     Dates: start: 20240816, end: 20240816
  31. POLARAMINE [Concomitant]
     Active Substance: DEXCHLORPHENIRAMINE MALEATE
     Route: 042
     Dates: start: 20240809, end: 20240809
  32. POLARAMINE [Concomitant]
     Active Substance: DEXCHLORPHENIRAMINE MALEATE
     Route: 048
     Dates: start: 20240830, end: 20240830
  33. KARDEGIC [Concomitant]
     Active Substance: ASPIRIN DL-LYSINE
     Route: 065
     Dates: start: 2008
  34. NEBIVOLOL [Concomitant]
     Active Substance: NEBIVOLOL
     Route: 065
     Dates: start: 2008
  35. NEBIVOLOL [Concomitant]
     Active Substance: NEBIVOLOL
  36. LERCANIDIPINE [Concomitant]
     Active Substance: LERCANIDIPINE
     Route: 065
     Dates: start: 2023, end: 20240815
  37. METFORMIN HYDROCHLORIDE [Concomitant]
     Active Substance: METFORMIN HYDROCHLORIDE
     Dates: start: 2003
  38. LIPTRUZET [Concomitant]
     Active Substance: ATORVASTATIN CALCIUM\EZETIMIBE
     Route: 065
     Dates: start: 2008
  39. VALACYCLOVIR HYDROCHLORIDE [Concomitant]
     Active Substance: VALACYCLOVIR HYDROCHLORIDE
     Route: 065
     Dates: start: 2019
  40. BACTRIM [Concomitant]
     Active Substance: SULFAMETHOXAZOLE\TRIMETHOPRIM
     Route: 065
     Dates: start: 2019
  41. OMEPRAZOLE [Concomitant]
     Active Substance: OMEPRAZOLE
     Route: 065
     Dates: start: 2018, end: 20240824
  42. ALLOPURINOL [Concomitant]
     Active Substance: ALLOPURINOL
     Route: 065
     Dates: start: 20231213
  43. CEFTRIAXONE [Concomitant]
     Active Substance: CEFTRIAXONE
     Route: 065
     Dates: start: 20240804, end: 20240814
  44. MORPHINE [Concomitant]
     Active Substance: MORPHINE
     Route: 065
     Dates: start: 20240806, end: 20240811
  45. DAPTOMYCIN [Concomitant]
     Active Substance: DAPTOMYCIN
     Route: 065
     Dates: start: 20240802, end: 20240809
  46. PANTOPRAZOLE [Concomitant]
     Active Substance: PANTOPRAZOLE
     Route: 065
     Dates: start: 20240808, end: 20240812
  47. SKENAN [Concomitant]
     Active Substance: MORPHINE SULFATE
     Route: 065
     Dates: start: 20240811
  48. ERYTHROPOIETIN [Concomitant]
     Active Substance: ERYTHROPOIETIN
     Route: 050
     Dates: start: 20240812
  49. PIPERACILLIN SODIUM\TAZOBACTAM SODIUM [Concomitant]
     Active Substance: PIPERACILLIN SODIUM\TAZOBACTAM SODIUM
     Route: 065
     Dates: start: 20240801, end: 20240803
  50. DEXAMETHASONE [Concomitant]
     Active Substance: DEXAMETHASONE
     Route: 042
     Dates: start: 20240816, end: 20240826
  51. DEXAMETHASONE [Concomitant]
     Active Substance: DEXAMETHASONE
     Route: 048
     Dates: start: 20240824, end: 20240826
  52. DEXAMETHASONE [Concomitant]
     Active Substance: DEXAMETHASONE
     Route: 065
     Dates: start: 20240823
  53. DEXAMETHASONE [Concomitant]
     Active Substance: DEXAMETHASONE
     Route: 048
     Dates: start: 20240817, end: 20240819
  54. FILGRASTIM [Concomitant]
     Active Substance: FILGRASTIM
     Route: 050
     Dates: start: 20240801, end: 20240814
  55. BI PRETERAX [INDAPAMIDE;PERINDOPRIL ARGININE] [Concomitant]
     Route: 065
     Dates: start: 2008, end: 20240822
  56. LANSOPRAZOLE [Concomitant]
     Active Substance: LANSOPRAZOLE
     Route: 050
     Dates: start: 20240824
  57. PERINDOPRIL [Concomitant]
     Active Substance: PERINDOPRIL
     Route: 050
     Dates: start: 20240822
  58. DEXCHLORPHENIRAMINE MALEATE [Concomitant]
     Active Substance: DEXCHLORPHENIRAMINE MALEATE
     Indication: Premedication
     Route: 050
     Dates: start: 20240816, end: 20240816
  59. DEXCHLORPHENIRAMINE MALEATE [Concomitant]
     Active Substance: DEXCHLORPHENIRAMINE MALEATE
     Route: 050
     Dates: start: 20240809, end: 20240809
  60. DEXCHLORPHENIRAMINE MALEATE [Concomitant]
     Active Substance: DEXCHLORPHENIRAMINE MALEATE
     Route: 050
     Dates: start: 20240726, end: 20240726
  61. PREDNISONE [Concomitant]
     Active Substance: PREDNISONE
     Dates: start: 20240705, end: 20240725
  62. PREDNISONE [Concomitant]
     Active Substance: PREDNISONE
     Dates: start: 20240705

REACTIONS (10)
  - Febrile neutropenia [Recovered/Resolved]
  - Neutropenia [Recovered/Resolved]
  - Neutrophil count decreased [Recovered/Resolved]
  - Gastric ulcer [Unknown]
  - Thrombocytopenia [Unknown]
  - Escherichia sepsis [Unknown]
  - Febrile bone marrow aplasia [Recovered/Resolved]
  - Oesophagitis [Unknown]
  - Staphylococcal bacteraemia [Unknown]
  - Off label use [Unknown]

NARRATIVE: CASE EVENT DATE: 20240801
